FAERS Safety Report 10149397 (Version 1)
Quarter: 2014Q2

REPORT INFORMATION
  Report Type: Spontaneous
  Country: IN (occurrence: None)
  Receive Date: 20140430
  Receipt Date: 20140430
  Transmission Date: 20141212
  Serious: Yes (Life-Threatening, Hospitalization)
  Sender: FDA-Public Use
  Company Number: 2014/022

PATIENT
  Age: 28 Year
  Sex: Female

DRUGS (1)
  1. AMLODIPINE [Suspect]
     Route: 048

REACTIONS (15)
  - Hypotension [None]
  - Hypoxia [None]
  - Heart rate increased [None]
  - Vomiting [None]
  - Dizziness [None]
  - Abdominal pain [None]
  - Generalised oedema [None]
  - Respiratory failure [None]
  - Pleural effusion [None]
  - Overdose [None]
  - Urine output decreased [None]
  - Blood creatinine increased [None]
  - Blood urea increased [None]
  - Central venous pressure increased [None]
  - Neutrophil percentage increased [None]
